FAERS Safety Report 8826516 (Version 1)
Quarter: 2012Q4

REPORT INFORMATION
  Report Type: 
  Country: US (occurrence: US)
  Receive Date: 20121005
  Receipt Date: 20121005
  Transmission Date: 20130627
  Serious: No
  Sender: FDA-Public Use
  Company Number: US-COVIDIEN/TYCO HEALTHCARE/MALLINCKRODT-T201203560

PATIENT
  Age: 60 Year
  Sex: Male

DRUGS (2)
  1. EXALGO EXTENDED RELEASE [Suspect]
     Indication: PAIN
     Dosage: UNK
     Dates: start: 201207
  2. DILAUDID [Suspect]
     Indication: PAIN
     Dosage: 8 mg, q 6 hours
     Dates: start: 2010

REACTIONS (1)
  - Incorrect dose administered [Recovered/Resolved]
